FAERS Safety Report 9249554 (Version 3)
Quarter: 2013Q2

REPORT INFORMATION
  Report Type: Report from Study
  Country: JP (occurrence: JP)
  Receive Date: 20130423
  Receipt Date: 20130522
  Transmission Date: 20140414
  Serious: Yes (Hospitalization)
  Sender: FDA-Public Use
  Company Number: JP-CELGENEUS-087-21660-13043430

PATIENT
  Age: 75 Year
  Sex: Male
  Weight: 54 kg

DRUGS (7)
  1. ABRAXANE [Suspect]
     Indication: PANCREATIC CARCINOMA METASTATIC
     Dosage: 195 MILLIGRAM
     Route: 041
     Dates: start: 20130411, end: 20130411
  2. GEMCITABINE HYDROCHLORIDE [Suspect]
     Indication: PANCREATIC CARCINOMA METASTATIC
     Dosage: 1561 MILLIGRAM
     Route: 041
     Dates: start: 20130411, end: 20130411
  3. GEMCITABINE HYDROCHLORIDE [Suspect]
     Dosage: 1500 MILLIGRAM
     Route: 041
     Dates: start: 20120425
  4. NEXIUM [Concomitant]
     Indication: PROPHYLAXIS AGAINST GASTROINTESTINAL ULCER
     Route: 048
     Dates: start: 20130402, end: 20130412
  5. MUCOSTA [Concomitant]
     Indication: PROPHYLAXIS AGAINST GASTROINTESTINAL ULCER
     Route: 048
     Dates: start: 201201, end: 20130412
  6. HUMALOG [Concomitant]
     Indication: DIABETES MELLITUS
     Route: 058
     Dates: start: 20130402
  7. LANTUS [Concomitant]
     Indication: DIABETES MELLITUS
     Route: 058
     Dates: start: 20130402

REACTIONS (1)
  - Cerebral infarction [Recovering/Resolving]
